FAERS Safety Report 14861523 (Version 1)
Quarter: 2018Q2

REPORT INFORMATION
  Report Type: Spontaneous
  Country: JP (occurrence: JP)
  Receive Date: 20180508
  Receipt Date: 20180508
  Transmission Date: 20180711
  Serious: Yes (Other)
  Sender: FDA-Public Use
  Company Number: JP-PFIZER INC-2018184816

PATIENT
  Sex: Male

DRUGS (4)
  1. ADRIACIN [Suspect]
     Active Substance: DOXORUBICIN HYDROCHLORIDE
     Indication: HODGKIN^S DISEASE
  2. VINBLASTINE [Suspect]
     Active Substance: VINBLASTINE
     Indication: HODGKIN^S DISEASE
  3. DACARBAZINE. [Suspect]
     Active Substance: DACARBAZINE
     Indication: HODGKIN^S DISEASE
  4. BLEOMYCIN [Suspect]
     Active Substance: BLEOMYCIN SULFATE
     Indication: HODGKIN^S DISEASE

REACTIONS (7)
  - Crohn^s disease [Unknown]
  - Bone marrow failure [Unknown]
  - Abdominal pain [Recovering/Resolving]
  - Condition aggravated [Unknown]
  - Intestinal ulcer [Recovering/Resolving]
  - Diarrhoea [Recovering/Resolving]
  - Intestinal stenosis [Recovering/Resolving]
